FAERS Safety Report 14769399 (Version 1)
Quarter: 2018Q2

REPORT INFORMATION
  Report Type: Report from Study
  Country: None (occurrence: CH)
  Receive Date: 20180417
  Receipt Date: 20180417
  Transmission Date: 20180711
  Serious: Yes (Hospitalization)
  Sender: FDA-Public Use
  Company Number: CH-ABBVIE-18K-151-2303371-00

PATIENT
  Sex: Male

DRUGS (1)
  1. DUODOPA [Suspect]
     Active Substance: CARBIDOPA\LEVODOPA
     Indication: PARKINSON^S DISEASE
     Dosage: MORNING DOSE 3.0ML?CONTINUOUS RATE 2.7ML/H?EXTRA DOSE 0.7ML
     Route: 050
     Dates: start: 20150623

REACTIONS (2)
  - Abdominal pain [Unknown]
  - C-reactive protein increased [Recovered/Resolved]
